FAERS Safety Report 23886249 (Version 2)
Quarter: 2024Q2

REPORT INFORMATION
  Report Type: Report from Study
  Country: IL (occurrence: IL)
  Receive Date: 20240522
  Receipt Date: 20240610
  Transmission Date: 20240716
  Serious: Yes (Hospitalization)
  Sender: FDA-Public Use
  Company Number: IL-ABBVIE-5769478

PATIENT
  Age: 46 Year
  Sex: Male
  Weight: 89 kg

DRUGS (9)
  1. RISANKIZUMAB [Suspect]
     Active Substance: RISANKIZUMAB
     Indication: Psoriasis
     Dosage: 1 INJECTION
     Route: 058
     Dates: start: 20231203
  2. RISANKIZUMAB [Suspect]
     Active Substance: RISANKIZUMAB
     Dosage: 1 INJECTION
     Route: 058
     Dates: start: 20221207
  3. RISANKIZUMAB [Suspect]
     Active Substance: RISANKIZUMAB
     Dosage: 1 INJECTION
     Route: 058
     Dates: start: 20240303
  4. RISANKIZUMAB [Suspect]
     Active Substance: RISANKIZUMAB
     Dosage: 1 INJECTION?LAST ADMIN DATE- 2023
     Route: 058
     Dates: start: 20230612
  5. RISANKIZUMAB [Suspect]
     Active Substance: RISANKIZUMAB
     Dosage: 1 INJECTION?LAST ADMIN DATE- 2023
     Route: 058
     Dates: start: 20230903
  6. RISANKIZUMAB [Suspect]
     Active Substance: RISANKIZUMAB
     Dosage: 1 INJECTION?LAST ADMIN DATE- 2022
     Route: 058
     Dates: start: 20221117
  7. RISANKIZUMAB [Suspect]
     Active Substance: RISANKIZUMAB
     Dosage: 1 INJECTION?LAST ADMIN DATE- 2023
     Route: 058
     Dates: start: 20230312
  8. clonex [Concomitant]
     Indication: Sleep disorder
     Route: 048
     Dates: start: 20190516
  9. JARDIANCE [Concomitant]
     Active Substance: EMPAGLIFLOZIN
     Indication: Diabetes mellitus
     Route: 048
     Dates: start: 20210705

REACTIONS (1)
  - Chest pain [Recovered/Resolved]

NARRATIVE: CASE EVENT DATE: 20240220
